FAERS Safety Report 4448656-1 (Version None)
Quarter: 2004Q3

REPORT INFORMATION
  Report Type: 
  Country: None (occurrence: None)
  Receive Date: 20040730
  Receipt Date: 20031007
  Transmission Date: 20050211
  Serious: Yes (Other)
  Sender: FDA-Public Use
  Company Number: 2003-10-0649

PATIENT
  Age: 53 Year
  Sex: Female

DRUGS (2)
  1. INTRON A [Suspect]
     Indication: BLADDER CANCER
     Dosage: Q WEEK INTRAVESICAL
     Route: 043
     Dates: start: 20030611, end: 20030716
  2. BCG VACCINE INJECTABLE [Suspect]
     Indication: BLADDER CANCER
     Dosage: INTRAVESICAL
     Route: 043

REACTIONS (2)
  - CORONARY ARTERY DISEASE [None]
  - DISEASE PROGRESSION [None]
